FAERS Safety Report 7978200-3 (Version None)
Quarter: 2011Q4

REPORT INFORMATION
  Report Type: 
  Country: None (occurrence: None)
  Receive Date: 20111129
  Receipt Date: 20110713
  Transmission Date: 20120403
  Serious: No
  Sender: FDA-Public Use
  Company Number: PHHY2011US62987

PATIENT
  Age: 16 Month
  Sex: Female

DRUGS (2)
  1. AFINITOR [Suspect]
     Indication: ASTROCYTOMA
     Dosage: 2.5 MG, DAILY, ORAL
     Route: 048
     Dates: start: 20110530
  2. AFINITOR [Suspect]
     Indication: TUBEROUS SCLEROSIS
     Dosage: 2.5 MG, DAILY, ORAL
     Route: 048
     Dates: start: 20110530

REACTIONS (1)
  - DRUG LEVEL BELOW THERAPEUTIC [None]
